FAERS Safety Report 11465616 (Version 3)
Quarter: 2016Q1

REPORT INFORMATION
  Report Type: Spontaneous
  Country: US (occurrence: US)
  Receive Date: 20150907
  Receipt Date: 20160310
  Transmission Date: 20160525
  Serious: Yes (Other)
  Sender: FDA-Public Use
  Company Number: PHHY2015US106784

PATIENT
  Sex: Female

DRUGS (16)
  1. DILAUDID [Suspect]
     Active Substance: HYDROMORPHONE HYDROCHLORIDE
     Indication: PAIN
     Dosage: UNK
     Route: 037
  2. MORPHINE [Suspect]
     Active Substance: MORPHINE
     Dosage: UNK, (CONCENTRATION 01 MG/ML)
     Route: 037
  3. BUPIVACAINE [Suspect]
     Active Substance: BUPIVACAINE
     Indication: PAIN
     Route: 037
  4. DILAUDID [Suspect]
     Active Substance: HYDROMORPHONE HYDROCHLORIDE
     Dosage: UNK
     Route: 065
  5. BACLOFEN. [Suspect]
     Active Substance: BACLOFEN
     Indication: PRODUCT USED FOR UNKNOWN INDICATION
     Route: 065
  6. GABAPENTIN. [Suspect]
     Active Substance: GABAPENTIN
     Indication: PRODUCT USED FOR UNKNOWN INDICATION
     Route: 048
  7. CYMBALTA [Suspect]
     Active Substance: DULOXETINE HYDROCHLORIDE
     Indication: PRODUCT USED FOR UNKNOWN INDICATION
     Route: 048
  8. NEURONTIN [Suspect]
     Active Substance: GABAPENTIN
     Indication: PRODUCT USED FOR UNKNOWN INDICATION
     Dosage: UNK
     Route: 065
  9. MORPHINE [Suspect]
     Active Substance: MORPHINE
     Indication: PAIN
     Dosage: UNK
     Route: 037
  10. BACLOFEN INTRATHECAL [Suspect]
     Active Substance: BACLOFEN
     Indication: PAIN
     Dosage: UNK
     Route: 037
  11. ALPRAZOLAM. [Suspect]
     Active Substance: ALPRAZOLAM
     Indication: PRODUCT USED FOR UNKNOWN INDICATION
     Route: 065
  12. FENTANYL. [Suspect]
     Active Substance: FENTANYL
     Indication: PAIN
     Route: 037
  13. MORPHINE [Suspect]
     Active Substance: MORPHINE
     Dosage: 4.401 MG, QD (10 MG/ML CONCENTRATION OF MORPHINE, A 10 PERCENTAGE INCREASE IN DAILY RATE)
     Route: 037
  14. LIDOCAINE. [Suspect]
     Active Substance: LIDOCAINE
     Indication: PAIN
     Dosage: UNK
     Route: 037
  15. TOPAMAX [Suspect]
     Active Substance: TOPIRAMATE
     Indication: PRODUCT USED FOR UNKNOWN INDICATION
     Dosage: UNK
     Route: 065
  16. OXYCONTIN [Suspect]
     Active Substance: OXYCODONE HYDROCHLORIDE
     Indication: PRODUCT USED FOR UNKNOWN INDICATION
     Route: 048

REACTIONS (24)
  - Therapeutic response unexpected [Unknown]
  - Neuropathy peripheral [Unknown]
  - Nerve injury [Unknown]
  - Pain in extremity [Unknown]
  - Medical device site pain [Unknown]
  - Depression [Unknown]
  - Back pain [Unknown]
  - Confusional state [Unknown]
  - Performance status decreased [Unknown]
  - Body temperature increased [Unknown]
  - Sedation [Unknown]
  - Discomfort [Unknown]
  - Insomnia [Unknown]
  - Burning sensation [Unknown]
  - Weight increased [Unknown]
  - Pruritus [Unknown]
  - Pain of skin [Unknown]
  - Muscular weakness [Unknown]
  - Psychomotor hyperactivity [Unknown]
  - Fear [Unknown]
  - Paradoxical drug reaction [Unknown]
  - Memory impairment [Unknown]
  - Medical device site swelling [Unknown]
  - Pain [Unknown]
